FAERS Safety Report 6835584-7 (Version None)
Quarter: 2010Q3

REPORT INFORMATION
  Report Type: 
  Country: None (occurrence: None)
  Receive Date: 20100713
  Receipt Date: 20100701
  Transmission Date: 20110219
  Serious: Yes (Other)
  Sender: FDA-Public Use
  Company Number: ES-ELI_LILLY_AND_COMPANY-ES201007001540

PATIENT
  Sex: Male
  Weight: 92 kg

DRUGS (3)
  1. FORTEO [Suspect]
     Indication: OSTEOPOROSIS
     Dosage: 20 UG, DAILY (1/D)
     Route: 058
  2. METFORMIN HCL [Concomitant]
     Indication: DIABETES MELLITUS
     Dosage: 850 MG, DAILY (1/D)
     Route: 048
  3. SINTROM [Concomitant]
     Indication: ARRHYTHMIA
     Dosage: UNK, ACCORDING TO HAEMATOLOGY RESULTS
     Route: 048

REACTIONS (1)
  - ARRHYTHMIA [None]
